FAERS Safety Report 25167758 (Version 1)
Quarter: 2025Q2

REPORT INFORMATION
  Report Type: Spontaneous
  Country: SI (occurrence: SI)
  Receive Date: 20250407
  Receipt Date: 20250407
  Transmission Date: 20250717
  Serious: Yes (Other)
  Sender: BAYER
  Company Number: SI-BAYER-2025A045895

PATIENT
  Age: 63 Year
  Sex: Male

DRUGS (8)
  1. KERENDIA [Suspect]
     Active Substance: FINERENONE
     Indication: Type 2 diabetes mellitus
     Dates: start: 20250207
  2. CANDESARTAN CILEXETIL [Concomitant]
     Active Substance: CANDESARTAN CILEXETIL
  3. XIGDUO XR [Concomitant]
     Active Substance: DAPAGLIFLOZIN PROPANEDIOL\METFORMIN HYDROCHLORIDE
  4. LACIDIPINE [Concomitant]
     Active Substance: LACIDIPINE
  5. GLUCOVANCE [Concomitant]
     Active Substance: GLYBURIDE\METFORMIN HYDROCHLORIDE
  6. ROSUVASTATIN CALCIUM [Concomitant]
     Active Substance: ROSUVASTATIN CALCIUM
  7. CIPRALEX [Concomitant]
     Active Substance: ESCITALOPRAM OXALATE
  8. Refidoro [Concomitant]

REACTIONS (3)
  - Blood albumin increased [None]
  - Respiratory rate increased [None]
  - Blood potassium decreased [None]
